FAERS Safety Report 6907152-X (Version None)
Quarter: 2010Q3

REPORT INFORMATION
  Report Type: 
  Country: None (occurrence: None)
  Receive Date: 20100804
  Receipt Date: 20090801
  Transmission Date: 20110219
  Serious: No
  Sender: FDA-Public Use
  Company Number: US-PFIZER INC-2009228711

PATIENT
  Sex: Female
  Weight: 54.4 kg

DRUGS (1)
  1. NARDIL [Suspect]
     Indication: DEPRESSION
     Dosage: 15 MG, 2X/DAY
     Route: 048
     Dates: start: 20090501

REACTIONS (3)
  - DISORIENTATION [None]
  - DIZZINESS [None]
  - INSOMNIA [None]
